FAERS Safety Report 17034645 (Version 1)
Quarter: 2019Q4

REPORT INFORMATION
  Report Type: Spontaneous
  Country: US (occurrence: US)
  Receive Date: 20191115
  Receipt Date: 20191115
  Transmission Date: 20200122
  Serious: No
  Sender: FDA-Public Use
  Company Number: US-AMGEN-USASP2019184790

PATIENT
  Age: 80 Year
  Sex: Female
  Weight: 40.8 kg

DRUGS (1)
  1. PROLIA [Suspect]
     Active Substance: DENOSUMAB
     Indication: OSTEOPOROSIS POSTMENOPAUSAL
     Dosage: 60 MILLIGRAM, Q6MO
     Route: 065
     Dates: start: 20190611

REACTIONS (4)
  - Facial pain [Unknown]
  - Oral pain [Unknown]
  - Fall [Unknown]
  - Arthralgia [Unknown]

NARRATIVE: CASE EVENT DATE: 2019
